FAERS Safety Report 11421504 (Version 1)
Quarter: 2015Q3

REPORT INFORMATION
  Report Type: Report from Study
  Country: CO (occurrence: CO)
  Receive Date: 20150826
  Receipt Date: 20150826
  Transmission Date: 20151125
  Serious: Yes (Death, Hospitalization, Other)
  Sender: FDA-Public Use
  Company Number: CO-ALEXION PHARMACEUTICALS INC-A201503267

PATIENT

DRUGS (1)
  1. SOLIRIS [Suspect]
     Active Substance: ECULIZUMAB
     Indication: HAEMOLYTIC URAEMIC SYNDROME
     Dosage: 900 MG, Q8 DAYS
     Route: 042
     Dates: start: 20150801, end: 20150814

REACTIONS (8)
  - Haemoglobin decreased [Unknown]
  - Pulmonary sepsis [Fatal]
  - Renal impairment [Unknown]
  - Coagulopathy [Unknown]
  - Inappropriate schedule of drug administration [Unknown]
  - Haemodynamic instability [Unknown]
  - Thrombocytopenia [Unknown]
  - Multi-organ failure [Fatal]

NARRATIVE: CASE EVENT DATE: 20150801
